FAERS Safety Report 7279969-6 (Version None)
Quarter: 2011Q1

REPORT INFORMATION
  Report Type: 
  Country: None (occurrence: None)
  Receive Date: 20110208
  Receipt Date: 20110201
  Transmission Date: 20110831
  Serious: Yes (Other)
  Sender: FDA-Public Use
  Company Number: US-PFIZER INC-2011023479

PATIENT
  Sex: Female

DRUGS (3)
  1. DILANTIN-125 [Suspect]
     Dosage: UNK
  2. KEPPRA [Suspect]
     Dosage: UNK
     Dates: start: 20110101
  3. DILANTIN-125 [Suspect]
     Dosage: 100 MG, 4X/DAY
     Dates: start: 20100101

REACTIONS (9)
  - RASH ERYTHEMATOUS [None]
  - DEPRESSION [None]
  - MOOD ALTERED [None]
  - CONVULSION [None]
  - PRURITUS GENERALISED [None]
  - HYPERSENSITIVITY [None]
  - ANXIETY [None]
  - IRRITABILITY [None]
  - LIBIDO DECREASED [None]
